FAERS Safety Report 11382345 (Version 1)
Quarter: 2015Q3

REPORT INFORMATION
  Report Type: Spontaneous
  Country: US (occurrence: US)
  Receive Date: 20150811
  Receipt Date: 20150811
  Transmission Date: 20151125
  Serious: No
  Sender: FDA-Public Use
  Company Number: US-ELI_LILLY_AND_COMPANY-US201004005195

PATIENT
  Age: 55 Year
  Sex: Male
  Weight: 88.44 kg

DRUGS (2)
  1. CIALIS [Suspect]
     Active Substance: TADALAFIL
     Indication: PROSTATE CANCER
     Dosage: 20 MG, UNKNOWN
     Route: 065
  2. CIALIS [Suspect]
     Active Substance: TADALAFIL
     Dosage: 2.5 MG, UNK

REACTIONS (3)
  - Drug ineffective [Unknown]
  - Headache [Unknown]
  - Adverse drug reaction [Unknown]
